FAERS Safety Report 5969725-0 (Version None)
Quarter: 2008Q4

REPORT INFORMATION
  Report Type: 
  Country: None (occurrence: None)
  Receive Date: 20081126
  Receipt Date: 20081118
  Transmission Date: 20090506
  Serious: Yes (Other)
  Sender: FDA-Public Use
  Company Number: AU-PFIZER INC-2008091754

PATIENT
  Sex: Male
  Weight: 59 kg

DRUGS (7)
  1. CHAMPIX [Suspect]
     Indication: SMOKING CESSATION THERAPY
     Route: 048
  2. ZOLOFT [Suspect]
     Indication: ANXIETY
     Route: 048
  3. ZOLOFT [Suspect]
     Indication: DEPRESSION
  4. GABAPENTIN [Suspect]
     Indication: NEURALGIA
  5. VALIUM [Concomitant]
     Indication: ANXIETY
     Route: 048
  6. MICARDIS [Concomitant]
     Indication: HYPERTENSION
     Route: 048
  7. REVIA [Concomitant]
     Indication: ABSTAINS FROM ALCOHOL
     Route: 048

REACTIONS (6)
  - ANXIETY [None]
  - CONFUSIONAL STATE [None]
  - DYSPNOEA [None]
  - HYPOREFLEXIA [None]
  - LETHARGY [None]
  - MEMORY IMPAIRMENT [None]
